FAERS Safety Report 6105802-1 (Version None)
Quarter: 2009Q1

REPORT INFORMATION
  Report Type: 
  Country: None (occurrence: None)
  Receive Date: 20090304
  Receipt Date: 20090304
  Transmission Date: 20090719
  Serious: Yes (Hospitalization)
  Sender: FDA-Public Use
  Company Number: None

PATIENT
  Sex: Female
  Weight: 73.4827 kg

DRUGS (3)
  1. PRECARE  PREMIER TAB THER RX [Suspect]
     Indication: BREAST FEEDING
     Dosage: 1 TABLET DAILY PO
     Route: 048
     Dates: start: 20060415, end: 20081115
  2. PRECARE  PREMIER TAB THER RX [Suspect]
     Indication: PREGNANCY
     Dosage: 1 TABLET DAILY PO
     Route: 048
     Dates: start: 20060415, end: 20081115
  3. PRECASE ADVANTAGE THER RX [Suspect]
     Indication: PREGNANCY
     Dosage: 1 TABLET 2X/DAY PO
     Route: 048
     Dates: start: 20081115, end: 20090115

REACTIONS (5)
  - DRUG EXPOSURE DURING PREGNANCY [None]
  - ELECTROCARDIOGRAM ABNORMAL [None]
  - NAUSEA [None]
  - PREGNANCY [None]
  - SYNCOPE [None]
